FAERS Safety Report 4433134-6 (Version None)
Quarter: 2004Q3

REPORT INFORMATION
  Report Type: 
  Country: None (occurrence: None)
  Receive Date: 20040823
  Receipt Date: 20040816
  Transmission Date: 20050211
  Serious: Yes (Hospitalization, Other)
  Sender: FDA-Public Use
  Company Number: KII-2004-0013024

PATIENT
  Age: 47 Year
  Sex: Male

DRUGS (4)
  1. OXYCONTIN [Suspect]
  2. ETHYLENE GLYCOL [Suspect]
     Dosage: ORAL
     Route: 048
  3. MARIJUANA (CANNABIS) [Suspect]
     Dosage: INHALATION
     Route: 055
  4. LAMICTAL [Suspect]
     Indication: MENTAL DISORDER
     Dosage: ORAL
     Route: 048

REACTIONS (19)
  - ANION GAP INCREASED [None]
  - APNOEA [None]
  - BLOOD BICARBONATE DECREASED [None]
  - BLOOD CREATININE INCREASED [None]
  - BLOOD GLUCOSE INCREASED [None]
  - BLOOD PH DECREASED [None]
  - BLOOD URINE PRESENT [None]
  - BODY TEMPERATURE INCREASED [None]
  - COMA [None]
  - DIALYSIS [None]
  - HYPEROXALURIA [None]
  - HYPOXIA [None]
  - MULTIPLE DRUG OVERDOSE [None]
  - PCO2 DECREASED [None]
  - POLYSUBSTANCE ABUSE [None]
  - SALIVARY HYPERSECRETION [None]
  - SPECIFIC GRAVITY URINE ABNORMAL [None]
  - STATUS EPILEPTICUS [None]
  - WHITE BLOOD CELL COUNT INCREASED [None]
